FAERS Safety Report 8212358-6 (Version None)
Quarter: 2012Q1

REPORT INFORMATION
  Report Type: 
  Country: None (occurrence: None)
  Receive Date: 20120315
  Receipt Date: 20111206
  Transmission Date: 20120608
  Serious: Yes (Hospitalization)
  Sender: FDA-Public Use
  Company Number: US-ROCHE-1019935

PATIENT
  Sex: Female

DRUGS (12)
  1. ATENOLOL [Concomitant]
  2. LAXATIVE NOS [Suspect]
     Indication: PRODUCT USED FOR UNKNOWN INDICATION
  3. PREDNISONE TAB [Concomitant]
  4. LISINOPRIL [Concomitant]
     Dosage: PRINIVIL,ZESTRIL
  5. LODINE [Concomitant]
  6. PLAQUENIL [Concomitant]
  7. ACTONEL [Concomitant]
  8. PEGASYS [Suspect]
     Indication: HEPATITIS C
     Route: 058
     Dates: start: 20110909
  9. RIBAVIRIN [Suspect]
     Indication: HEPATITIS C
     Dates: start: 20110909
  10. PRILOSEC [Concomitant]
  11. FIORICET [Concomitant]
     Dosage: ACETAMINOPHEN:325 MG,BUTALBITAL:50 MG, CAFFEINE:40 MG
  12. VICODIN [Concomitant]
     Dosage: HYDROCODONE BITARTRATE:5 MG, PARACETAMOL:500 MG

REACTIONS (4)
  - VITAMIN D DECREASED [None]
  - APHTHOUS STOMATITIS [None]
  - PETIT MAL EPILEPSY [None]
  - OVERDOSE [None]
